FAERS Safety Report 7515475-9 (Version None)
Quarter: 2011Q2

REPORT INFORMATION
  Report Type: 
  Country: None (occurrence: None)
  Receive Date: 20110601
  Receipt Date: 20100629
  Transmission Date: 20111010
  Serious: No
  Sender: FDA-Public Use
  Company Number: US-PFIZER INC-2010082707

PATIENT
  Sex: Female
  Weight: 47.619 kg

DRUGS (10)
  1. TOPROL-XL [Concomitant]
     Indication: MITRAL VALVE PROLAPSE
     Dosage: 25 MG, 1X/DAY
     Route: 048
  2. AMITIZA [Concomitant]
     Indication: GASTRIC DISORDER
     Dosage: 8 UG, 2X/DAY
     Route: 048
  3. CHANTIX [Suspect]
     Dosage: 1 MG, 2X/DAY
     Route: 048
  4. TOPROL-XL [Concomitant]
     Indication: HEART RATE IRREGULAR
  5. VIVELLE [Concomitant]
     Indication: HOT FLUSH
     Dosage: 0.0375 MG
     Route: 062
  6. VYTORIN [Concomitant]
     Indication: BLOOD CHOLESTEROL INCREASED
     Dosage: 10MG/40MG, 1X/DAY
     Route: 048
  7. NEXIUM [Concomitant]
     Indication: GASTRIC DISORDER
     Dosage: 40 MG, 2X/DAY
     Route: 048
  8. ZYRTEC [Concomitant]
     Indication: HYPERSENSITIVITY
     Dosage: 10 MG, 1X/DAY
     Route: 048
  9. CHANTIX [Suspect]
     Indication: SMOKING CESSATION THERAPY
     Dosage: 0.5 MG, UNK
     Route: 048
  10. REGLAN [Concomitant]
     Indication: GASTRIC DISORDER
     Dosage: 5 MG, 4X/DAY
     Route: 048

REACTIONS (1)
  - NAUSEA [None]
